FAERS Safety Report 5130742-4 (Version None)
Quarter: 2006Q3

REPORT INFORMATION
  Report Type: 
  Country: None (occurrence: None)
  Receive Date: 20060829
  Receipt Date: 20060606
  Transmission Date: 20061208
  Serious: No
  Sender: FDA-Public Use
  Company Number: PHEH2006US01808

PATIENT
  Age: 32 Year
  Sex: Male
  Weight: 115.2 kg

DRUGS (6)
  1. EXJADE [Suspect]
     Indication: HAEMOCHROMATOSIS
     Dosage: 500MG X4TABS X ONCE, ORAL
     Route: 048
     Dates: start: 20060205, end: 20060205
  2. NEURONTIN [Concomitant]
  3. BACTRIM DS [Concomitant]
  4. LEVOTHYROXINE SODIUM [Concomitant]
  5. IMMUNOGLOBULIN G HUMAN (IMMUNOGLOBULIN G HUMAN) [Concomitant]
  6. HYDROCORTISONE [Concomitant]

REACTIONS (3)
  - FEELING HOT [None]
  - GENERALISED ERYTHEMA [None]
  - SKIN EXFOLIATION [None]
